FAERS Safety Report 18392454 (Version 1)
Quarter: 2020Q4

REPORT INFORMATION
  Report Type: Spontaneous
  Country: US (occurrence: US)
  Receive Date: 20201016
  Receipt Date: 20201016
  Transmission Date: 20210114
  Serious: Yes (Hospitalization)
  Sender: FDA-Public Use
  Company Number: None

PATIENT
  Age: 51 Year
  Sex: Female
  Weight: 117 kg

DRUGS (3)
  1. AMLODIPINE [Concomitant]
     Active Substance: AMLODIPINE BESYLATE
  2. ASPIRIN. [Suspect]
     Active Substance: ASPIRIN
     Dates: end: 20200921
  3. TAMOXIFEN [Concomitant]
     Active Substance: TAMOXIFEN

REACTIONS (9)
  - Gait disturbance [None]
  - Hypertriglyceridaemia [None]
  - Hypokinesia [None]
  - Cardiomyopathy [None]
  - Cardiac failure congestive [None]
  - Ejection fraction decreased [None]
  - Dyspnoea [None]
  - Hypertension [None]
  - Decreased activity [None]

NARRATIVE: CASE EVENT DATE: 20200922
